FAERS Safety Report 7139170-3 (Version None)
Quarter: 2010Q4

REPORT INFORMATION
  Report Type: 
  Country: None (occurrence: None)
  Receive Date: 20101202
  Receipt Date: 20101202
  Transmission Date: 20110411
  Serious: Yes (Other)
  Sender: FDA-Public Use
  Company Number: None

PATIENT
  Age: 44 Year
  Sex: Female
  Weight: 72.5755 kg

DRUGS (1)
  1. DARVOCET [Suspect]
     Indication: BACK PAIN
     Dosage: 100/650 Q4-6HOURS PO
     Route: 048
     Dates: start: 20090416, end: 20090417

REACTIONS (2)
  - ARRHYTHMIA [None]
  - DYSPNOEA [None]
